FAERS Safety Report 23465554 (Version 1)
Quarter: 2024Q1

REPORT INFORMATION
  Report Type: Spontaneous
  Country: US (occurrence: US)
  Receive Date: 20240201
  Receipt Date: 20240201
  Transmission Date: 20240410
  Serious: No
  Sender: FDA-Public Use
  Company Number: US-SA-SAC20240124001717

PATIENT
  Age: 49 Year
  Sex: Female
  Weight: 77.11 kg

DRUGS (2)
  1. DUPIXENT [Suspect]
     Active Substance: DUPILUMAB
     Indication: Dermatitis atopic
     Dosage: 300 MG, QOW
     Route: 058
  2. ESTROGENS\METHYLTESTOSTERONE [Concomitant]
     Active Substance: ESTROGENS\METHYLTESTOSTERONE
     Dosage: UNK

REACTIONS (1)
  - Rash pruritic [Recovering/Resolving]
